FAERS Safety Report 11811875 (Version 2)
Quarter: 2015Q4

REPORT INFORMATION
  Report Type: Spontaneous
  Country: US (occurrence: US)
  Receive Date: 20151208
  Receipt Date: 20151208
  Transmission Date: 20160305
  Serious: No
  Sender: FDA-Public Use
  Company Number: US-LPDUSPRD-20140803

PATIENT
  Age: 49 Year
  Sex: Female

DRUGS (11)
  1. NITROGLYCERIN. [Concomitant]
     Active Substance: NITROGLYCERIN
     Dosage: NOT PROVIDED (AS NEEDED)
     Route: 065
  2. ASPIRIN. [Concomitant]
     Active Substance: ASPIRIN
     Dosage: NOT PROVIDED
     Route: 065
  3. LLISINOPRIL [Concomitant]
     Dosage: NOT PROVIDED
     Route: 065
  4. ATORVASTATIN [Concomitant]
     Active Substance: ATORVASTATIN
     Dosage: NOT PROVIDED
     Route: 065
  5. PROTONIX [Concomitant]
     Active Substance: PANTOPRAZOLE SODIUM
     Dosage: NOT PROVIDED
     Route: 065
  6. HYDROCHLOROTHIAZIDE. [Concomitant]
     Active Substance: HYDROCHLOROTHIAZIDE
     Dosage: NOT PROVIDED
     Route: 065
  7. WARFARIN [Concomitant]
     Active Substance: WARFARIN
     Dosage: NOT PROVIDED
     Route: 065
  8. AMIODARONE [Concomitant]
     Active Substance: AMIODARONE
     Dosage: NOT PROVIDED
     Route: 065
  9. TEMAZEPAM. [Concomitant]
     Active Substance: TEMAZEPAM
     Dosage: NOT PROVIDED
     Route: 065
  10. VENOFER [Suspect]
     Active Substance: IRON SUCROSE
     Dosage: 200 MG IN 100 ML NSS IN 40 MIN
     Route: 042
     Dates: start: 20141205
  11. METOPROLOL [Concomitant]
     Active Substance: METOPROLOL
     Dosage: NOT PROVIDED
     Route: 065

REACTIONS (5)
  - Off label use [Unknown]
  - Diarrhoea [Recovered/Resolved]
  - Abdominal discomfort [Recovered/Resolved]
  - Headache [Recovered/Resolved]
  - Nausea [Recovered/Resolved]

NARRATIVE: CASE EVENT DATE: 20141205
